FAERS Safety Report 18209496 (Version 2)
Quarter: 2020Q4

REPORT INFORMATION
  Report Type: Spontaneous
  Country: US (occurrence: US)
  Receive Date: 20200828
  Receipt Date: 20201209
  Transmission Date: 20210113
  Serious: Yes (Other)
  Sender: FDA-Public Use
  Company Number: US-009507513-2008USA012690

PATIENT
  Sex: Female

DRUGS (7)
  1. SINGULAIR [Suspect]
     Active Substance: MONTELUKAST SODIUM
     Indication: MULTIPLE ALLERGIES
     Dosage: UNK
     Route: 048
  2. OFEV [Suspect]
     Active Substance: NINTEDANIB
     Dosage: UNK
     Route: 048
     Dates: start: 20190426
  3. OFEV [Suspect]
     Active Substance: NINTEDANIB
     Dosage: UNK
  4. OFEV [Suspect]
     Active Substance: NINTEDANIB
     Dosage: 150 MILLIGRAM, 1 IN 12 HOURS
     Route: 048
     Dates: start: 20190426
  5. OFEV [Suspect]
     Active Substance: NINTEDANIB
     Indication: IDIOPATHIC PULMONARY FIBROSIS
     Dosage: 150 MILLIGRAM, 1 IN 12 HOURS
     Route: 048
     Dates: start: 20190101
  6. OFEV [Suspect]
     Active Substance: NINTEDANIB
     Dosage: UNK
  7. OFEV [Suspect]
     Active Substance: NINTEDANIB
     Dosage: UNK
     Route: 048

REACTIONS (9)
  - Bronchitis [Unknown]
  - Diarrhoea [Not Recovered/Not Resolved]
  - Cyst [Unknown]
  - Productive cough [Unknown]
  - Bronchospasm [Unknown]
  - Dyspnoea exertional [Unknown]
  - Lung cyst [Unknown]
  - Oropharyngeal pain [Unknown]
  - Multiple allergies [Unknown]
